FAERS Safety Report 9608916 (Version 3)
Quarter: 2013Q4

REPORT INFORMATION
  Report Type: Spontaneous
  Country: JP (occurrence: JP)
  Receive Date: 20131009
  Receipt Date: 20131030
  Transmission Date: 20140711
  Serious: Yes (Other)
  Sender: FDA-Public Use
  Company Number: JP-OTSUKA-JP-2013-12624

PATIENT
  Age: 58 Year
  Sex: Male

DRUGS (10)
  1. SAMSCA [Suspect]
     Indication: CARDIAC FAILURE
     Dosage: 3.75 MG MILLIGRAM(S), QD
     Route: 048
     Dates: start: 20130619, end: 20130627
  2. FEBURIC [Suspect]
     Indication: HYPERURICAEMIA
     Dosage: 10 MG MILLIGRAM(S), QD
     Route: 048
     Dates: start: 20130613, end: 20130627
  3. PRIMPERAN [Suspect]
     Indication: NAUSEA
     Dosage: 5 MG MILLIGRAM(S), BID
     Route: 048
     Dates: start: 20130619, end: 20130627
  4. LASIX [Concomitant]
     Indication: CARDIAC FAILURE
     Dosage: 100 MG MILLIGRAM(S), DAILY DOSE
     Route: 048
  5. LASIX [Concomitant]
     Dosage: 40 MG MILLIGRAM(S), DAILY DOSE
     Route: 048
     Dates: start: 20130619
  6. LASIX [Concomitant]
     Dosage: DOSE DECREASED
     Route: 048
  7. ALDACTONE A [Concomitant]
     Indication: HYPERTENSION
     Dosage: 25 MG MILLIGRAM(S), DAILY DOSE
     Route: 048
  8. ALDACTONE A [Concomitant]
     Dosage: DOSE DECREASED
     Route: 048
  9. LASIX [Concomitant]
     Dosage: 80 MG MILLIGRAM(S), DAILY DOSE
     Route: 042
     Dates: start: 20130611
  10. SOLDACTONE [Concomitant]
     Dosage: 200 MG MILLIGRAM(S), DAILY DOSE
     Route: 042
     Dates: start: 20130611

REACTIONS (1)
  - Eosinophil count increased [Recovered/Resolved]
